FAERS Safety Report 17507632 (Version 16)
Quarter: 2024Q1

REPORT INFORMATION
  Report Type: Report from Study
  Country: US (occurrence: US)
  Receive Date: 20200306
  Receipt Date: 20240326
  Transmission Date: 20240410
  Serious: Yes (Death, Other)
  Sender: FDA-Public Use
  Company Number: US-TAKEDA-2020TUS012218

PATIENT
  Age: 82 Year
  Sex: Male
  Weight: 84 kg

DRUGS (6)
  1. VEDOLIZUMAB [Suspect]
     Active Substance: VEDOLIZUMAB
     Indication: Crohn^s disease
     Dosage: 300 MILLIGRAM
     Route: 042
     Dates: start: 202001, end: 2020
  2. VEDOLIZUMAB [Suspect]
     Active Substance: VEDOLIZUMAB
     Indication: Colitis ulcerative
     Dosage: 300 MILLIGRAM
     Route: 042
     Dates: start: 20200301, end: 20201101
  3. VEDOLIZUMAB [Suspect]
     Active Substance: VEDOLIZUMAB
     Dosage: 300 MILLIGRAM
     Route: 042
     Dates: start: 20220907
  4. PROSCAR [Concomitant]
     Active Substance: FINASTERIDE
     Dosage: UNK
  5. PREVALITE [Concomitant]
     Active Substance: CHOLESTYRAMINE
     Indication: Blood cholesterol increased
     Dosage: UNK
  6. PREVALITE [Concomitant]
     Active Substance: CHOLESTYRAMINE
     Indication: Crohn^s disease

REACTIONS (6)
  - Death [Fatal]
  - Intestinal stenosis [Unknown]
  - Atrial fibrillation [Unknown]
  - Poor venous access [Recovered/Resolved]
  - Diarrhoea [Not Recovered/Not Resolved]
  - Drug ineffective [Unknown]

NARRATIVE: CASE EVENT DATE: 20201018
